FAERS Safety Report 10198484 (Version 2)
Quarter: 2016Q2

REPORT INFORMATION
  Report Type: Spontaneous
  Country: US (occurrence: US)
  Receive Date: 20140527
  Receipt Date: 20160601
  Transmission Date: 20160815
  Serious: No
  Sender: FDA-Public Use
  Company Number: US-NOVEN-13US007309

PATIENT
  Age: 7 Year
  Sex: Male

DRUGS (4)
  1. RITALIN [Concomitant]
     Active Substance: METHYLPHENIDATE HYDROCHLORIDE
     Indication: ATTENTION DEFICIT/HYPERACTIVITY DISORDER
     Dosage: 1/2 DOSE BID
     Route: 048
  2. TRAVATAN [Concomitant]
     Active Substance: TRAVOPROST
     Indication: INSOMNIA
  3. DAYTRANA [Suspect]
     Active Substance: METHYLPHENIDATE
     Dosage: 15 MG, UNKNOWN
     Route: 062
  4. DAYTRANA [Suspect]
     Active Substance: METHYLPHENIDATE
     Indication: ATTENTION DEFICIT/HYPERACTIVITY DISORDER
     Dosage: 20 MG, QD
     Route: 062
     Dates: start: 2012

REACTIONS (6)
  - Product quality issue [Not Recovered/Not Resolved]
  - Drug administration error [Not Recovered/Not Resolved]
  - Drug effect decreased [Unknown]
  - Disturbance in attention [Not Recovered/Not Resolved]
  - Aggression [Unknown]
  - Product adhesion issue [Unknown]

NARRATIVE: CASE EVENT DATE: 20130705
